FAERS Safety Report 8447805-8 (Version None)
Quarter: 2012Q2

REPORT INFORMATION
  Report Type: 
  Country: None (occurrence: None)
  Receive Date: 20120619
  Receipt Date: 20120608
  Transmission Date: 20120825
  Serious: Yes (Hospitalization)
  Sender: FDA-Public Use
  Company Number: US-BAYER-2011-082128

PATIENT
  Age: 40 Year
  Sex: Female
  Weight: 81.633 kg

DRUGS (5)
  1. PREDNISONE [Concomitant]
     Indication: FIBROMATOSIS
     Dosage: 10 MG, BIDTIMES 2 DAYS THEN 1 A DAYFOR 2 DAYS.
     Dates: start: 20090309
  2. YAZ [Suspect]
     Indication: CONTRACEPTION
     Dosage: UNK
     Dates: start: 20081210, end: 20090331
  3. DARVOCET-N 100 [Concomitant]
     Indication: PAIN IN EXTREMITY
     Dosage: UNK
     Dates: start: 20090330
  4. DIFLUCAN [Concomitant]
     Dosage: 150 MG, IF NEEDED
     Dates: start: 20081210, end: 20090330
  5. NEXIUM [Concomitant]
     Indication: GASTROOESOPHAGEAL REFLUX DISEASE

REACTIONS (8)
  - DEEP VEIN THROMBOSIS [None]
  - INJURY [None]
  - GENERAL PHYSICAL HEALTH DETERIORATION [None]
  - OEDEMA PERIPHERAL [None]
  - DECREASED ACTIVITY [None]
  - PAIN IN EXTREMITY [None]
  - ANXIETY [None]
  - EMOTIONAL DISTRESS [None]
